FAERS Safety Report 6346673-8 (Version None)
Quarter: 2009Q3

REPORT INFORMATION
  Report Type: 
  Country: None (occurrence: None)
  Receive Date: 20090904
  Receipt Date: 20090824
  Transmission Date: 20100115
  Serious: Yes (Other)
  Sender: FDA-Public Use
  Company Number: 2009AP000614

PATIENT
  Age: 37 Year
  Sex: Female

DRUGS (5)
  1. PAROXETINE HCL [Suspect]
     Indication: DEPRESSED MOOD
     Dosage: 40 MG, QD;
  2. DIAZEPAM [Concomitant]
  3. PROPRANOLOL [Concomitant]
  4. VITAMINS NOS (VITAMINS NOS) [Concomitant]
  5. HYPERICUM PERFORATUM (HYPERICUM PERFORATUM) [Concomitant]

REACTIONS (31)
  - ALCOHOL ABUSE [None]
  - ALCOHOL WITHDRAWAL SYNDROME [None]
  - ALOPECIA [None]
  - ANXIETY [None]
  - CARDIAC FAILURE [None]
  - CONGESTIVE CARDIOMYOPATHY [None]
  - DEPRESSED MOOD [None]
  - DIZZINESS [None]
  - DRUG EXPOSURE DURING PREGNANCY [None]
  - DRUG HYPERSENSITIVITY [None]
  - ECZEMA [None]
  - HAEMORRHAGE [None]
  - HAEMORRHAGIC DIATHESIS [None]
  - HYPERCHOLESTEROLAEMIA [None]
  - HYPERTENSION [None]
  - INJURY [None]
  - NAUSEA [None]
  - OBESITY [None]
  - PANIC ATTACK [None]
  - PANIC REACTION [None]
  - PARANOIA [None]
  - PARTNER STRESS [None]
  - PHOTOSENSITIVITY REACTION [None]
  - PREGNANCY [None]
  - PURPURA [None]
  - RASH [None]
  - RASH ERYTHEMATOUS [None]
  - SLEEP DISORDER [None]
  - SUICIDAL IDEATION [None]
  - VASCULITIS [None]
  - WITHDRAWAL SYNDROME [None]
